FAERS Safety Report 5646049-2 (Version None)
Quarter: 2008Q1

REPORT INFORMATION
  Report Type: 
  Country: None (occurrence: None)
  Receive Date: 20080227
  Receipt Date: 20080215
  Transmission Date: 20080703
  Serious: Yes (Hospitalization)
  Sender: FDA-Public Use
  Company Number: B0509392A

PATIENT
  Age: 39 Year
  Sex: Female

DRUGS (1)
  1. AUGMENTIN [Suspect]
     Indication: LUNG DISORDER
     Dosage: 1 GRAM(S) PER DAY/ INTRAVENOUS
     Route: 042
     Dates: start: 20070905, end: 20070906

REACTIONS (9)
  - CHOLESTASIS [None]
  - COAGULATION FACTOR V LEVEL DECREASED [None]
  - HAEMODYNAMIC INSTABILITY [None]
  - HEPATIC ISCHAEMIA [None]
  - HEPATIC LESION [None]
  - HEPATIC NECROSIS [None]
  - HEPATITIS ALCOHOLIC [None]
  - HEPATITIS TOXIC [None]
  - HEPATOCELLULAR INJURY [None]
